FAERS Safety Report 4779476-6 (Version None)
Quarter: 2005Q3

REPORT INFORMATION
  Report Type: 
  Country: None (occurrence: None)
  Receive Date: 20050922
  Receipt Date: 20050509
  Transmission Date: 20060218
  Serious: Yes (Other)
  Sender: FDA-Public Use
  Company Number: 2005071752

PATIENT
  Sex: Female
  Weight: 14.9687 kg

DRUGS (4)
  1. ZYRTEC [Suspect]
     Indication: MULTIPLE ALLERGIES
     Dosage: 5 MG (5 MG, 1 IN 1 D), ORAL
     Route: 048
  2. PULMICORT [Concomitant]
  3. XOPENEX [Concomitant]
  4. SINGULAIR [Concomitant]

REACTIONS (1)
  - CONVULSION [None]
